FAERS Safety Report 14673268 (Version 1)
Quarter: 2018Q1

REPORT INFORMATION
  Report Type: Spontaneous
  Country: PT (occurrence: PT)
  Receive Date: 20180323
  Receipt Date: 20180323
  Transmission Date: 20180509
  Serious: Yes (Life-Threatening)
  Sender: FDA-Public Use
  Company Number: PT-FRESENIUS KABI-FK201803564

PATIENT
  Age: 50 Year
  Sex: Male

DRUGS (1)
  1. DEXAMETHASONE INJECTION (MANUFACTURER UNKNOWN) [Suspect]
     Active Substance: DEXAMETHASONE
     Indication: ADRENOCORTICAL STEROID THERAPY
     Route: 065

REACTIONS (2)
  - Immunosuppression [Unknown]
  - Pneumocystis jirovecii pneumonia [Unknown]
